FAERS Safety Report 8086359-5 (Version None)
Quarter: 2012Q1

REPORT INFORMATION
  Report Type: 
  Country: None (occurrence: None)
  Receive Date: 20120128
  Receipt Date: 20110509
  Transmission Date: 20120608
  Serious: No
  Sender: FDA-Public Use
  Company Number: US-ABBOTT-11P-163-0724685-00

PATIENT
  Sex: Female
  Weight: 77.18 kg

DRUGS (7)
  1. METHOTREXATE [Concomitant]
     Indication: RHEUMATOID ARTHRITIS
  2. ASCORBIC ACID [Concomitant]
     Indication: PRODUCT USED FOR UNKNOWN INDICATION
  3. HUMIRA [Suspect]
     Indication: RHEUMATOID ARTHRITIS
     Route: 058
     Dates: start: 20110401
  4. MICROGESTIN 1.5/30 [Concomitant]
     Indication: CONTRACEPTION
  5. HYDROCORTISONE [Suspect]
     Indication: INJECTION SITE REACTION
     Dates: start: 20110505, end: 20110505
  6. CALCIUM +D [Concomitant]
     Indication: PRODUCT USED FOR UNKNOWN INDICATION
  7. FOLIC ACID [Concomitant]
     Indication: PRODUCT USED FOR UNKNOWN INDICATION

REACTIONS (3)
  - INJECTION SITE URTICARIA [None]
  - INJECTION SITE VESICLES [None]
  - INJECTION SITE PRURITUS [None]
